FAERS Safety Report 6311895-9 (Version None)
Quarter: 2009Q3

REPORT INFORMATION
  Report Type: 
  Country: None (occurrence: None)
  Receive Date: 20090817
  Receipt Date: 20090804
  Transmission Date: 20100115
  Serious: Yes (Hospitalization)
  Sender: FDA-Public Use
  Company Number: DE-ELI_LILLY_AND_COMPANY-DE200908000780

PATIENT
  Age: 74 Year
  Sex: Male

DRUGS (3)
  1. EFFIENT [Suspect]
     Indication: ACUTE CORONARY SYNDROME
  2. ASPIRIN [Concomitant]
  3. HEPARIN [Concomitant]
     Indication: PERCUTANEOUS CORONARY INTERVENTION

REACTIONS (3)
  - HAEMATOMA [None]
  - HAEMORRHAGE [None]
  - MONOPARESIS [None]
